FAERS Safety Report 4835486-1 (Version None)
Quarter: 2005Q4

REPORT INFORMATION
  Report Type: 
  Country: None (occurrence: None)
  Receive Date: 20051121
  Receipt Date: 20051107
  Transmission Date: 20060501
  Serious: Yes (Other)
  Sender: FDA-Public Use
  Company Number: 2005152623

PATIENT
  Age: 55 Year
  Sex: Male

DRUGS (2)
  1. ZYVOX [Suspect]
     Indication: ILL-DEFINED DISORDER
  2. LORCET-HD [Concomitant]

REACTIONS (1)
  - HALLUCINATION [None]
